FAERS Safety Report 21250476 (Version 4)
Quarter: 2022Q4

REPORT INFORMATION
  Report Type: Spontaneous
  Country: US (occurrence: US)
  Receive Date: 20220824
  Receipt Date: 20221219
  Transmission Date: 20230112
  Serious: Yes (Hospitalization, Other)
  Sender: FDA-Public Use
  Company Number: US-BIOMARINAP-US-2022-144976

PATIENT

DRUGS (3)
  1. BRINEURA [Suspect]
     Active Substance: CERLIPONASE ALFA
     Indication: Hereditary ataxia
     Dosage: 300 MILLIGRAM, QOW
     Route: 020
     Dates: start: 20180621
  2. BRINEURA [Suspect]
     Active Substance: CERLIPONASE ALFA
     Indication: Neuronal ceroid lipofuscinosis
  3. KEPPRA [Concomitant]
     Active Substance: LEVETIRACETAM
     Indication: Product used for unknown indication
     Dosage: 1500, UNK, BID
     Route: 048

REACTIONS (8)
  - Hydrocephalus [Unknown]
  - Vomiting [Unknown]
  - Migraine [Recovered/Resolved]
  - Device occlusion [Unknown]
  - Off label use [Unknown]
  - Neck pain [Unknown]
  - Asthenia [Unknown]
  - Urinary incontinence [Unknown]

NARRATIVE: CASE EVENT DATE: 20220701
